FAERS Safety Report 5224512-6 (Version None)
Quarter: 2007Q1

REPORT INFORMATION
  Report Type: 
  Country: None (occurrence: None)
  Receive Date: 20070126
  Receipt Date: 20070117
  Transmission Date: 20070707
  Serious: Yes (Other)
  Sender: FDA-Public Use
  Company Number: 233725

PATIENT
  Age: 60 Year
  Sex: Male

DRUGS (5)
  1. RAPTIVA [Suspect]
     Indication: PSORIASIS
     Dosage: 1 MG/KG, 1/WEEK; SEE IMAGE
     Dates: start: 20050101, end: 20050101
  2. ZOCOR [Concomitant]
  3. FOLATE (FOLATE SODIUM) [Concomitant]
  4. VIAGRA [Concomitant]
  5. GLUCOSAMINE/CHONDROITIN (CHONDROITIN SULFATE, GLUCOSAMINE) [Concomitant]

REACTIONS (1)
  - PAPILLARY THYROID CANCER [None]
